FAERS Safety Report 9723407 (Version 1)
Quarter: 2013Q4

REPORT INFORMATION
  Report Type: Spontaneous
  Country: JP (occurrence: JP)
  Receive Date: 20131202
  Receipt Date: 20131202
  Transmission Date: 20140711
  Serious: Yes (Other)
  Sender: FDA-Public Use
  Company Number: JP-SA-2013SA120930

PATIENT
  Age: 70 Year
  Sex: Male

DRUGS (4)
  1. FUROSEMIDE [Suspect]
     Indication: DIURETIC THERAPY
     Route: 065
  2. CISPLATIN [Suspect]
     Indication: METASTASES TO LYMPH NODES
     Dosage: ON DAY-1
     Route: 065
  3. 5-FU [Concomitant]
     Indication: METASTASES TO LYMPH NODES
     Dosage: ON DAYS 1-4
  4. THERAPEUTIC RADIOPHARMACEUTICALS [Concomitant]
     Indication: METASTASES TO LYMPH NODES
     Dosage: 54 GY

REACTIONS (9)
  - Renal impairment [Unknown]
  - Renal tubular disorder [Unknown]
  - Hyponatraemia [Unknown]
  - Blood creatinine increased [Unknown]
  - Dehydration [Recovered/Resolved]
  - Polyuria [Recovered/Resolved]
  - Hyperammonaemia [Recovered/Resolved]
  - Altered state of consciousness [Recovering/Resolving]
  - Asterixis [Recovering/Resolving]
